FAERS Safety Report 6233231-9 (Version None)
Quarter: 2009Q2

REPORT INFORMATION
  Report Type: 
  Country: None (occurrence: None)
  Receive Date: 20090617
  Receipt Date: 20090612
  Transmission Date: 20091009
  Serious: Yes (Life-Threatening, Hospitalization, Other)
  Sender: FDA-Public Use
  Company Number: PHEH2009US06135

PATIENT
  Sex: Male

DRUGS (5)
  1. EXELON [Suspect]
     Indication: MEMORY IMPAIRMENT
     Dosage: 4.6 MG, UNK
  2. EXELON [Suspect]
     Dosage: 9.5 MG, UNK
  3. EXELON [Suspect]
     Indication: MEMORY IMPAIRMENT
  4. NAMENDA [Concomitant]
  5. FOSAMAX [Concomitant]

REACTIONS (2)
  - APPARENT DEATH [None]
  - HYPOTENSION [None]
